FAERS Safety Report 7683877-6 (Version None)
Quarter: 2011Q3

REPORT INFORMATION
  Report Type: 
  Country: None (occurrence: None)
  Receive Date: 20110815
  Receipt Date: 20110804
  Transmission Date: 20111222
  Serious: Yes (Hospitalization, Disabling, Other)
  Sender: FDA-Public Use
  Company Number: US-BAYER-201029616NA

PATIENT
  Age: 27 Year
  Sex: Female
  Weight: 85.714 kg

DRUGS (3)
  1. MOTRIN [Concomitant]
     Indication: HEADACHE
     Dosage: UNK UNK, PRN
     Dates: start: 20070620, end: 20070710
  2. YAZ [Suspect]
     Indication: MENSTRUATION IRREGULAR
     Dosage: UNK
     Route: 048
     Dates: start: 20070611, end: 20070710
  3. MOTRIN [Concomitant]
     Indication: PAIN

REACTIONS (7)
  - MENTAL DISORDER [None]
  - NERVOUS SYSTEM DISORDER [None]
  - MONOPLEGIA [None]
  - CONFUSIONAL STATE [None]
  - DEPRESSION [None]
  - AMNESIA [None]
  - CEREBROVASCULAR ACCIDENT [None]
